FAERS Safety Report 12295619 (Version 1)
Quarter: 2016Q2

REPORT INFORMATION
  Report Type: Spontaneous
  Country: CN (occurrence: CN)
  Receive Date: 20160422
  Receipt Date: 20160422
  Transmission Date: 20160815
  Serious: Yes (Other)
  Sender: FDA-Public Use
  Company Number: CN-PFM-CN-2016-1300

PATIENT
  Age: 44 Year
  Sex: Female

DRUGS (4)
  1. VINORELBINE INN [Suspect]
     Active Substance: VINORELBINE TARTRATE
     Indication: BREAST CANCER METASTATIC
  2. CARBOPLATIN. [Suspect]
     Active Substance: CARBOPLATIN
     Indication: INVASIVE DUCTAL BREAST CARCINOMA
     Dosage: 400 MG, CYCLICAL (1/21) ON DAY 01
     Route: 065
  3. CARBOPLATIN. [Suspect]
     Active Substance: CARBOPLATIN
     Indication: BREAST CANCER METASTATIC
  4. VINORELBINE INN [Suspect]
     Active Substance: VINORELBINE TARTRATE
     Indication: INVASIVE DUCTAL BREAST CARCINOMA
     Dosage: 80 MG/M2, (40MG/M2 ON DAY 01 AND DAY 08), CYCLICAL (1/21) -
     Route: 065

REACTIONS (12)
  - Blood glucose decreased [Unknown]
  - Nausea [Unknown]
  - Dyspnoea [Unknown]
  - Seizure [Unknown]
  - Dizziness [Unknown]
  - Lymphocyte count increased [Unknown]
  - Vomiting [Unknown]
  - Protein total increased [Unknown]
  - Headache [Unknown]
  - Diplopia [Unknown]
  - Tinnitus [Unknown]
  - Palpitations [Unknown]
